FAERS Safety Report 20505076 (Version 5)
Quarter: 2022Q1

REPORT INFORMATION
  Report Type: Report from Study
  Country: CN (occurrence: CN)
  Receive Date: 20220223
  Receipt Date: 20220311
  Transmission Date: 20220423
  Serious: Yes (Life-Threatening)
  Sender: FDA-Public Use
  Company Number: CN-BoehringerIngelheim-2022-BI-154418

PATIENT
  Age: 85 Year
  Sex: Female
  Weight: 50 kg

DRUGS (13)
  1. TENECTEPLASE [Suspect]
     Active Substance: TENECTEPLASE
     Indication: Ischaemic stroke
     Dosage: MOST RECENT DOSE RECEIVED ON 13/FEB/2022.
     Route: 042
     Dates: start: 20220213
  2. ACETYLCYSTEINE [Concomitant]
     Active Substance: ACETYLCYSTEINE
     Indication: Pneumonia
     Dosage: SOLUTION
     Route: 055
     Dates: start: 20220214
  3. PANTOPRAZOLE [Concomitant]
     Active Substance: PANTOPRAZOLE
     Indication: Ischaemic stroke
     Dosage: FORM OF ADMIN: POWDER FOR INJECTION
     Route: 042
     Dates: start: 20220214
  4. MANNITOL [Concomitant]
     Active Substance: MANNITOL
     Indication: Dehydration
     Route: 042
     Dates: start: 20220214
  5. SODIUM BICARBONATE [Concomitant]
     Active Substance: SODIUM BICARBONATE
     Indication: Drug therapy
     Route: 042
     Dates: start: 20220214
  6. NALMEFENE [Concomitant]
     Active Substance: NALMEFENE
     Indication: Ischaemic stroke
     Route: 042
     Dates: start: 20220213
  7. BUTYLPHTHALIDE [Concomitant]
     Active Substance: BUTYLPHTHALIDE
     Indication: Ischaemic stroke
     Route: 042
     Dates: start: 20220213
  8. BUDESONIDE [Concomitant]
     Active Substance: BUDESONIDE
     Indication: Pneumonia
     Dosage: DORM OF ADMIN: SUSPENSION
     Route: 055
     Dates: start: 20220214
  9. DEXAMETHASONE [Concomitant]
     Active Substance: DEXAMETHASONE
     Indication: Hypersensitivity
     Route: 042
     Dates: start: 20220215
  10. GANGLIOSIDE GM1 [Concomitant]
     Active Substance: GANGLIOSIDE GM1
     Indication: Ischaemic stroke
     Route: 042
     Dates: start: 20220213, end: 20220214
  11. GANGLIOSIDE GM1 [Concomitant]
     Active Substance: GANGLIOSIDE GM1
     Dosage: 10 ML
     Route: 048
     Dates: start: 20220213, end: 20220213
  12. ALBUMIN HUMAN [Concomitant]
     Active Substance: ALBUMIN HUMAN
     Indication: Intracranial pressure increased
     Route: 042
     Dates: start: 20220216, end: 20220216
  13. FUROSEMIDE [Concomitant]
     Active Substance: FUROSEMIDE
     Indication: Intracranial pressure increased
     Route: 042
     Dates: start: 20220216, end: 20220216

REACTIONS (2)
  - Brain oedema [Not Recovered/Not Resolved]
  - Cerebral haemorrhage [Not Recovered/Not Resolved]

NARRATIVE: CASE EVENT DATE: 20220214
